FAERS Safety Report 13132084 (Version 1)
Quarter: 2017Q1

REPORT INFORMATION
  Report Type: Spontaneous
  Country: DE (occurrence: DE)
  Receive Date: 20170119
  Receipt Date: 20170119
  Transmission Date: 20170428
  Serious: Yes (Other)
  Sender: FDA-Public Use
  Company Number: DE-BAUSCH-BL-2017-001422

PATIENT
  Sex: Male
  Weight: 2.8 kg

DRUGS (9)
  1. PRESINOL [Concomitant]
     Active Substance: METHYLDOPA
     Indication: HYPERTENSION
     Route: 064
  2. MYCOPHENOLATMOFETIL [Concomitant]
     Indication: PROPHYLAXIS AGAINST TRANSPLANT REJECTION
     Route: 064
  3. FOLSAEURE (NEM) [Concomitant]
     Indication: VITAMIN SUPPLEMENTATION
     Route: 064
     Dates: start: 20150130, end: 20150622
  4. TACROLIMUS. [Suspect]
     Active Substance: TACROLIMUS
     Indication: PROPHYLAXIS AGAINST TRANSPLANT REJECTION
     Route: 064
     Dates: start: 20141016, end: 20150622
  5. DECORTIN-H [Suspect]
     Active Substance: PREDNISOLONE
     Indication: PROPHYLAXIS AGAINST TRANSPLANT REJECTION
     Route: 064
     Dates: start: 20141016, end: 20150622
  6. ASS 100 [Concomitant]
     Active Substance: ASPIRIN
     Indication: CEREBROVASCULAR ACCIDENT PROPHYLAXIS
     Route: 064
     Dates: start: 20141016, end: 20150622
  7. AZATHIOPRINE. [Suspect]
     Active Substance: AZATHIOPRINE
     Indication: PROPHYLAXIS AGAINST TRANSPLANT REJECTION
     Route: 064
     Dates: start: 20141016, end: 20150622
  8. METFORMIN [Suspect]
     Active Substance: METFORMIN HYDROCHLORIDE
     Indication: PROPHYLAXIS AGAINST TRANSPLANT REJECTION
     Route: 064
     Dates: start: 20141016, end: 20150622
  9. PANTOPRAZOL [Concomitant]
     Active Substance: PANTOPRAZOLE SODIUM
     Indication: PROPHYLAXIS AGAINST GASTROINTESTINAL ULCER
     Route: 064
     Dates: start: 20141016, end: 20150622

REACTIONS (4)
  - Hypernatraemia [Recovering/Resolving]
  - Thrombocytopenia neonatal [Recovering/Resolving]
  - Hypoglycaemia neonatal [Recovered/Resolved]
  - Hyperkalaemia [Recovering/Resolving]
